FAERS Safety Report 7227376-4 (Version None)
Quarter: 2011Q1

REPORT INFORMATION
  Report Type: 
  Country: None (occurrence: None)
  Receive Date: 20110111
  Receipt Date: 20110111
  Transmission Date: 20110831
  Serious: Yes (Life-Threatening)
  Sender: FDA-Public Use
  Company Number: None

PATIENT
  Age: 44 Year
  Sex: Female
  Weight: 58.514 kg

DRUGS (21)
  1. REQUIP [Concomitant]
  2. TRAZODONE HCL [Concomitant]
  3. BACLOFEN [Concomitant]
  4. VALIUM [Concomitant]
  5. PHENERGAN HCL [Concomitant]
  6. RABOXIN [Concomitant]
  7. BENADRYL [Concomitant]
  8. DILANTIN [Suspect]
     Indication: MUSCLE SPASMS
     Dosage: 300 MG Q 4 H PO
     Route: 048
     Dates: start: 20101202, end: 20101211
  9. DILANTIN [Suspect]
     Indication: CONVULSION
     Dosage: 300 MG Q 4 H PO
     Route: 048
     Dates: start: 20101202, end: 20101211
  10. VISTARIL [Concomitant]
  11. FLEXERIL [Concomitant]
  12. TRAZODONE HCL [Concomitant]
  13. QUININE [Concomitant]
  14. MELATONIN [Concomitant]
  15. TRUVADA [Concomitant]
  16. DILANTIN [Suspect]
     Dosage: 100 MG Q 8 H PO
     Route: 048
  17. COMPAZINE [Concomitant]
  18. KALETRA [Concomitant]
  19. HYDROCODONE BITARTRATE [Concomitant]
  20. ZOFRAN [Concomitant]
  21. THORAZINE [Concomitant]

REACTIONS (10)
  - COORDINATION ABNORMAL [None]
  - VISION BLURRED [None]
  - VOMITING [None]
  - REFUSAL OF TREATMENT BY PATIENT [None]
  - LUPUS-LIKE SYNDROME [None]
  - INSOMNIA [None]
  - ATAXIA [None]
  - CONFUSIONAL STATE [None]
  - STEVENS-JOHNSON SYNDROME [None]
  - GINGIVAL BLEEDING [None]
